FAERS Safety Report 5150538-7 (Version None)
Quarter: 2006Q4

REPORT INFORMATION
  Report Type: 
  Country: None (occurrence: None)
  Receive Date: 20061110
  Receipt Date: 20061110
  Transmission Date: 20070319
  Serious: Yes (Other)
  Sender: FDA-Public Use
  Company Number: None

PATIENT
  Age: 25 Year
  Sex: Female
  Weight: 90.7194 kg

DRUGS (3)
  1. CVS ES PAIN RELIEF CAPLETS   EXTRA STRENGTH 500CAPLETS-500MG   MCNEIL [Suspect]
     Indication: HEADACHE
     Dosage: 2 CAPLETS  EVERY 6 HRS  PO
     Route: 048
     Dates: start: 20061001, end: 20061106
  2. CVS ES PAIN RELIEF CAPLETS   EXTRA STRENGTH 500CAPLETS-500MG   MCNEIL [Suspect]
     Indication: MUSCLE SPASMS
     Dosage: 2 CAPLETS  EVERY 6 HRS  PO
     Route: 048
     Dates: start: 20061001, end: 20061106
  3. CVS ES PAIN RELIEF CAPLETS   EXTRA STRENGTH 500CAPLETS-500MG   MCNEIL [Suspect]
     Indication: TOOTHACHE
     Dosage: 2 CAPLETS  EVERY 6 HRS  PO
     Route: 048
     Dates: start: 20061001, end: 20061106

REACTIONS (1)
  - CHEST PAIN [None]
